FAERS Safety Report 6485903-9 (Version None)
Quarter: 2009Q4

REPORT INFORMATION
  Report Type: 
  Country: None (occurrence: None)
  Receive Date: 20091204
  Receipt Date: 20091130
  Transmission Date: 20100525
  Serious: Yes (Death, Other)
  Sender: FDA-Public Use
  Company Number: 2009US004218

PATIENT
  Age: 54 Year
  Sex: Male

DRUGS (5)
  1. PROGRAF [Suspect]
     Indication: LIVER TRANSPLANT
  2. PEGINTERFERON ALFA-2A (PEGINTERFERON ALFA-2A) [Concomitant]
  3. MYCOPHENOLATE MOFETIL [Concomitant]
  4. ERYTHROPOIETIN (ERYTHROPOIETIN) [Concomitant]
  5. FILGRASTIM (FILGRASTIM) [Concomitant]

REACTIONS (6)
  - DISEASE RECURRENCE [None]
  - HEPATIC FIBROSIS [None]
  - HEPATITIS C [None]
  - MYELODYSPLASTIC SYNDROME [None]
  - SEPTIC SHOCK [None]
  - SKIN INFECTION [None]
